FAERS Safety Report 8599207-1 (Version None)
Quarter: 2012Q3

REPORT INFORMATION
  Report Type: 
  Country: None (occurrence: None)
  Receive Date: 20120816
  Receipt Date: 20110923
  Transmission Date: 20120928
  Serious: No
  Sender: FDA-Public Use
  Company Number: US-AMGEN-USASP2011018217

PATIENT
  Age: 79 Year
  Sex: Female
  Weight: 66.213 kg

DRUGS (6)
  1. NEUPOGEN [Suspect]
     Indication: CHEMOTHERAPY
     Dosage: 480 MUG, QD
     Route: 058
     Dates: start: 20110117, end: 20110718
  2. BENICAR HCT [Concomitant]
  3. DAYPRO [Concomitant]
  4. CRESTOR [Concomitant]
  5. AMLODIPINE [Concomitant]
  6. POTASSIUM [Concomitant]

REACTIONS (4)
  - DERMATITIS [None]
  - FEELING HOT [None]
  - ERYTHEMA [None]
  - PAIN OF SKIN [None]
